FAERS Safety Report 9643923 (Version 1)
Quarter: 2013Q4

REPORT INFORMATION
  Report Type: Spontaneous
  Country: US (occurrence: US)
  Receive Date: 20131024
  Receipt Date: 20131024
  Transmission Date: 20140711
  Serious: No
  Sender: FDA-Public Use
  Company Number: US-009507513-1310USA008558

PATIENT
  Sex: 0

DRUGS (1)
  1. NUVARING [Suspect]

REACTIONS (4)
  - Abdominal pain [Unknown]
  - Mood swings [Unknown]
  - Irritability [Unknown]
  - Increased appetite [Unknown]
